FAERS Safety Report 12253113 (Version 1)
Quarter: 2016Q2

REPORT INFORMATION
  Report Type: Spontaneous
  Country: US (occurrence: None)
  Receive Date: 20160408
  Receipt Date: 20160408
  Transmission Date: 20160815
  Serious: Yes (Disabling)
  Sender: FDA-Public Use
  Company Number: None

PATIENT
  Age: 63 Year
  Sex: Female
  Weight: 72.58 kg

DRUGS (8)
  1. VITAMIN D [Concomitant]
     Active Substance: CHOLECALCIFEROL
  2. ASA [Concomitant]
     Active Substance: ASPIRIN
  3. TIROSINT [Concomitant]
     Active Substance: LEVOTHYROXINE SODIUM
  4. VIT B [Concomitant]
     Active Substance: VITAMIN B
  5. VAGIFEM [Concomitant]
     Active Substance: ESTRADIOL
  6. VITAMIN C [Concomitant]
     Active Substance: ASCORBIC ACID
  7. KLONOPIN [Concomitant]
     Active Substance: CLONAZEPAM
  8. PROLIA [Suspect]
     Active Substance: DENOSUMAB
     Indication: OSTEOPOROSIS
     Dosage: 60MG PREFILLED SYRINGE Q 6 MOS. SQ INJECTION
     Route: 058
     Dates: start: 20150727

REACTIONS (3)
  - Nerve injury [None]
  - Joint stiffness [None]
  - Raynaud^s phenomenon [None]

NARRATIVE: CASE EVENT DATE: 201601
